FAERS Safety Report 14868259 (Version 3)
Quarter: 2018Q2

REPORT INFORMATION
  Report Type: Report from Study
  Country: CA (occurrence: CA)
  Receive Date: 20180509
  Receipt Date: 20180607
  Transmission Date: 20180711
  Serious: Yes (Other)
  Sender: FDA-Public Use
  Company Number: CA-ROCHE-1898419

PATIENT
  Age: 75 Year
  Sex: Male

DRUGS (11)
  1. ESBRIET [Suspect]
     Active Substance: PIRFENIDONE
     Route: 048
     Dates: start: 2017
  2. SYNTHROID [Concomitant]
     Active Substance: LEVOTHYROXINE SODIUM
  3. MOXIFLOXACIN. [Concomitant]
     Active Substance: MOXIFLOXACIN
     Route: 065
  4. ESBRIET [Suspect]
     Active Substance: PIRFENIDONE
     Route: 048
     Dates: start: 2018
  5. PANTOPRAZOLE [Concomitant]
     Active Substance: PANTOPRAZOLE
  6. ESBRIET [Suspect]
     Active Substance: PIRFENIDONE
     Route: 048
     Dates: start: 20170515
  7. ESBRIET [Suspect]
     Active Substance: PIRFENIDONE
     Route: 048
     Dates: start: 201704
  8. ESBRIET [Suspect]
     Active Substance: PIRFENIDONE
     Indication: IDIOPATHIC PULMONARY FIBROSIS
     Route: 048
     Dates: start: 20170127
  9. ESBRIET [Suspect]
     Active Substance: PIRFENIDONE
     Route: 048
     Dates: start: 2017
  10. LOTRIDERM [Concomitant]
     Active Substance: BETAMETHASONE DIPROPIONATE\CLOTRIMAZOLE
     Indication: ECZEMA
     Route: 065
  11. ESBRIET [Suspect]
     Active Substance: PIRFENIDONE
     Route: 048
     Dates: start: 2017

REACTIONS (26)
  - Carbon dioxide increased [Unknown]
  - Pulmonary artery dilatation [Unknown]
  - Dry skin [Not Recovered/Not Resolved]
  - Ocular hyperaemia [Unknown]
  - Ill-defined disorder [Recovering/Resolving]
  - Skin burning sensation [Unknown]
  - Eye swelling [Unknown]
  - Erythema [Not Recovered/Not Resolved]
  - Carboxyhaemoglobin increased [Unknown]
  - Dyspnoea [Recovering/Resolving]
  - Chest pain [Recovering/Resolving]
  - Sleep disorder [Recovering/Resolving]
  - Lymph node calcification [Unknown]
  - Lacrimation increased [Not Recovered/Not Resolved]
  - Productive cough [Not Recovered/Not Resolved]
  - Blood lactic acid increased [Unknown]
  - Cough [Recovering/Resolving]
  - Oxygen saturation decreased [Unknown]
  - Skin exfoliation [Not Recovered/Not Resolved]
  - Vision blurred [Unknown]
  - Eczema [Recovering/Resolving]
  - Dyspnoea exertional [Not Recovered/Not Resolved]
  - Rash macular [Recovering/Resolving]
  - PO2 decreased [Unknown]
  - Nasopharyngitis [Unknown]
  - Rash [Not Recovered/Not Resolved]

NARRATIVE: CASE EVENT DATE: 2017
